FAERS Safety Report 5442578-5 (Version None)
Quarter: 2007Q3

REPORT INFORMATION
  Report Type: 
  Country: None (occurrence: None)
  Receive Date: 20070904
  Receipt Date: 20070820
  Transmission Date: 20080115
  Serious: Yes (Other)
  Sender: FDA-Public Use
  Company Number: CA-SHR-01/00177-CDS

PATIENT
  Age: 50 Year
  Sex: Female
  Weight: 82 kg

DRUGS (10)
  1. BETASERON [Suspect]
     Indication: SECONDARY PROGRESSIVE MULTIPLE SCLEROSIS
     Dosage: 8 MIU QOD
     Route: 058
     Dates: start: 19981026, end: 20010111
  2. BETASERON [Suspect]
     Dosage: 8 MIU, EVERY 2D
     Route: 058
     Dates: start: 20020311, end: 20050820
  3. TEGRETOL [Concomitant]
  4. CIMETIDINE HCL [Concomitant]
  5. LEVOTHYROXINE SODIUM [Concomitant]
  6. ESTRACE [Concomitant]
  7. PAROXETINE [Concomitant]
  8. PHENAZOPYRIDINE HCL TAB [Concomitant]
  9. TOLTERODINE TARTRATE [Concomitant]
  10. ELTROXIN [Concomitant]
     Route: 048

REACTIONS (2)
  - HODGKIN'S DISEASE [None]
  - NON-HODGKIN'S LYMPHOMA [None]
